FAERS Safety Report 6278754-1 (Version None)
Quarter: 2009Q3

REPORT INFORMATION
  Report Type: 
  Country: None (occurrence: None)
  Receive Date: 20090721
  Receipt Date: 20090709
  Transmission Date: 20100115
  Serious: Yes (Hospitalization)
  Sender: FDA-Public Use
  Company Number: 2009SP001465

PATIENT
  Age: 40 Year
  Sex: Female

DRUGS (5)
  1. XOPENEX [Suspect]
     Indication: BRONCHIECTASIS
     Dosage: 1.25 MG/3ML; QID; INHALATION
     Route: 055
  2. ORAL CONTRACEPTIVE NOS [Suspect]
     Indication: CONTRACEPTION
     Dosage: ORAL
     Route: 048
  3. VERAPAMIL [Concomitant]
  4. PREDNISONE [Concomitant]
  5. IPRATROPIUM BROMIDE [Concomitant]

REACTIONS (2)
  - CEREBROVASCULAR ACCIDENT [None]
  - PULMONARY FUNCTION TEST DECREASED [None]
